FAERS Safety Report 19927941 (Version 1)
Quarter: 2021Q4

REPORT INFORMATION
  Report Type: Spontaneous
  Country: FR (occurrence: FR)
  Receive Date: 20211007
  Receipt Date: 20211007
  Transmission Date: 20220303
  Serious: Yes (Other)
  Sender: FDA-Public Use
  Company Number: None

PATIENT
  Age: 25 Year
  Sex: Female

DRUGS (2)
  1. TRAMADOL HYDROCHLORIDE [Suspect]
     Active Substance: TRAMADOL HYDROCHLORIDE
     Dosage: UNSPECIFIED.
     Route: 048
     Dates: end: 202107
  2. OXAZEPAM [Suspect]
     Active Substance: OXAZEPAM
     Dosage: SCORED TABLET, 150 MG
     Route: 048
     Dates: start: 2018

REACTIONS (4)
  - Drug abuse [Recovering/Resolving]
  - Seizure [Recovered/Resolved]
  - Intentional overdose [Recovered/Resolved]
  - Drug withdrawal syndrome neonatal [Recovered/Resolved]

NARRATIVE: CASE EVENT DATE: 20210701
